FAERS Safety Report 17672194 (Version 1)
Quarter: 2020Q2

REPORT INFORMATION
  Report Type: Spontaneous
  Country: GB (occurrence: GB)
  Receive Date: 20200415
  Receipt Date: 20200415
  Transmission Date: 20200713
  Serious: Yes (Hospitalization)
  Sender: FDA-Public Use
  Company Number: NVSC2020GB101149

PATIENT
  Age: 30 Year
  Sex: Male

DRUGS (2)
  1. SERTRALINE [Concomitant]
     Active Substance: SERTRALINE HYDROCHLORIDE
     Indication: PRODUCT USED FOR UNKNOWN INDICATION
     Dosage: UNK
     Route: 065
  2. TEGRETOL [Suspect]
     Active Substance: CARBAMAZEPINE
     Indication: AFFECTIVE DISORDER
     Dosage: 400 MG, QD
     Route: 048
     Dates: start: 20191124, end: 20191205

REACTIONS (8)
  - Malaise [Unknown]
  - Dysphagia [Unknown]
  - Swollen tongue [Unknown]
  - Stevens-Johnson syndrome [Recovering/Resolving]
  - Rash pruritic [Unknown]
  - Oropharyngeal pain [Unknown]
  - Erythema multiforme [Unknown]
  - Productive cough [Unknown]

NARRATIVE: CASE EVENT DATE: 20191202
